FAERS Safety Report 8822490 (Version 1)
Quarter: 2012Q4

REPORT INFORMATION
  Report Type: 
  Country: US (occurrence: US)
  Receive Date: 20121003
  Receipt Date: 20121003
  Transmission Date: 20130627
  Serious: Yes (Hospitalization, Other)
  Sender: FDA-Public Use
  Company Number: US-ELI_LILLY_AND_COMPANY-US201209006287

PATIENT
  Age: 64 Year
  Sex: Male

DRUGS (16)
  1. CYMBALTA [Suspect]
     Indication: DEPRESSION
     Dosage: 60mg, UNK
     Dates: start: 2010
  2. CYMBALTA [Suspect]
     Dosage: 90mg, UNK
  3. CYMBALTA [Suspect]
     Dosage: 60mg, UNK
  4. METHOTREXATE [Concomitant]
  5. KEPPRA [Concomitant]
  6. LEUCOVORIN [Concomitant]
  7. LISINOPRIL [Concomitant]
  8. PROMETHAZINE [Concomitant]
  9. DEXAMETHASONE [Concomitant]
  10. BACTRIM [Concomitant]
  11. LORCET [Concomitant]
  12. XANAX [Concomitant]
  13. PANTOPRAZOLE [Concomitant]
  14. SODIUM BICARBONATE [Concomitant]
  15. LASIX [Concomitant]
  16. POTASSIUM [Concomitant]

REACTIONS (2)
  - Central nervous system lymphoma [Unknown]
  - Brain neoplasm [Unknown]
